FAERS Safety Report 5639364-X (Version None)
Quarter: 2008Q1

REPORT INFORMATION
  Report Type: 
  Country: None (occurrence: None)
  Receive Date: 20080131
  Receipt Date: 20071117
  Transmission Date: 20080703
  Serious: Yes (Other)
  Sender: FDA-Public Use
  Company Number: 163-21880-07111106

PATIENT
  Age: 76 Year
  Sex: Male

DRUGS (1)
  1. REVLIMID [Suspect]
     Indication: MYELODYSPLASTIC SYNDROME
     Dosage: X21 DAYS/ 28 DAYS, ORAL
     Route: 048
     Dates: start: 20071001

REACTIONS (1)
  - MYOCARDIAL INFARCTION [None]
